FAERS Safety Report 9687242 (Version 1)
Quarter: 2013Q4

REPORT INFORMATION
  Report Type: Spontaneous
  Country: US (occurrence: US)
  Receive Date: 20131113
  Receipt Date: 20131113
  Transmission Date: 20140711
  Serious: Yes (Death)
  Sender: FDA-Public Use
  Company Number: US-ROCHE-1304008

PATIENT
  Sex: Male

DRUGS (7)
  1. XELODA [Suspect]
     Indication: GASTRIC CANCER
     Dosage: 4 TABLETS EVERY AM AND PM, 14 DAYS ON AND 7 DAYS
     Route: 048
     Dates: start: 20130516
  2. CARDURA [Concomitant]
  3. NORVASC [Concomitant]
  4. OMEPRAZOLE [Concomitant]
  5. VICODIN [Concomitant]
  6. COLACE [Concomitant]
  7. PLETAL [Concomitant]

REACTIONS (1)
  - Death [Fatal]
